FAERS Safety Report 19747956 (Version 1)
Quarter: 2021Q3

REPORT INFORMATION
  Report Type: Spontaneous
  Country: US (occurrence: US)
  Receive Date: 20210825
  Receipt Date: 20210825
  Transmission Date: 20211014
  Serious: No
  Sender: FDA-Public Use
  Company Number: US-SA-2021SA276430

PATIENT
  Age: 70 Year
  Sex: Female

DRUGS (6)
  1. PLAVIX [Suspect]
     Active Substance: CLOPIDOGREL BISULFATE
     Dosage: UNK
     Route: 065
  2. MACITENTAN [Suspect]
     Active Substance: MACITENTAN
     Indication: PULMONARY ARTERIAL HYPERTENSION
     Dosage: 10 MG
     Route: 048
     Dates: start: 20190201
  3. SELEXIPAG [Suspect]
     Active Substance: SELEXIPAG
     Dosage: 1000 UG, BID
     Route: 065
  4. BRILINTA [Suspect]
     Active Substance: TICAGRELOR
     Dosage: UNK
     Route: 065
  5. SELEXIPAG [Suspect]
     Active Substance: SELEXIPAG
     Indication: PULMONARY ARTERIAL HYPERTENSION
     Dosage: 800 UG, BID
     Route: 048
     Dates: start: 20210602
  6. SELEXIPAG [Suspect]
     Active Substance: SELEXIPAG
     Dosage: 1200 UG, QD
     Route: 048
     Dates: start: 20210602

REACTIONS (9)
  - Neck pain [Unknown]
  - Dyspnoea [Unknown]
  - Malaise [Unknown]
  - Pain in jaw [Recovering/Resolving]
  - Thinking abnormal [Unknown]
  - Drug ineffective [Unknown]
  - Stent placement [Unknown]
  - Pain in extremity [Unknown]
  - Headache [Recovering/Resolving]
